FAERS Safety Report 20742923 (Version 1)
Quarter: 2022Q2

REPORT INFORMATION
  Report Type: Report from Study
  Country: CL (occurrence: CL)
  Receive Date: 20220425
  Receipt Date: 20220425
  Transmission Date: 20220721
  Serious: Yes (Other)
  Sender: FDA-Public Use
  Company Number: CL-ABBVIE-22K-034-4368174-00

PATIENT
  Sex: Female

DRUGS (1)
  1. HUMIRA [Suspect]
     Active Substance: ADALIMUMAB
     Indication: Rheumatoid arthritis
     Route: 058
     Dates: start: 20180424

REACTIONS (4)
  - Traumatic heart injury [Unknown]
  - Cardiac disorder [Not Recovered/Not Resolved]
  - Blood pressure abnormal [Unknown]
  - Blood calcium decreased [Not Recovered/Not Resolved]
